FAERS Safety Report 11596509 (Version 1)
Quarter: 2015Q4

REPORT INFORMATION
  Report Type: Spontaneous
  Country: US (occurrence: US)
  Receive Date: 20151006
  Receipt Date: 20151006
  Transmission Date: 20160304
  Serious: No
  Sender: FDA-Public Use
  Company Number: US-EMD SERONO-8045235

PATIENT
  Sex: Female

DRUGS (3)
  1. REBIF [Suspect]
     Active Substance: INTERFERON BETA-1A
     Indication: MULTIPLE SCLEROSIS
  2. VICODIN [Suspect]
     Active Substance: ACETAMINOPHEN\HYDROCODONE BITARTRATE
     Indication: PAIN
  3. AMPYRA [Suspect]
     Active Substance: DALFAMPRIDINE
     Indication: ABASIA

REACTIONS (12)
  - Weight increased [Unknown]
  - Multiple sclerosis relapse [Unknown]
  - Urticaria [Unknown]
  - Drug ineffective [Unknown]
  - Fall [Unknown]
  - Limb injury [Unknown]
  - Rash macular [Unknown]
  - Joint injury [Unknown]
  - Pain [Unknown]
  - Abasia [Unknown]
  - Adverse reaction [Unknown]
  - Drug dose omission [Unknown]
